FAERS Safety Report 11026170 (Version 1)
Quarter: 2015Q2

REPORT INFORMATION
  Report Type: Spontaneous
  Country: NZ (occurrence: None)
  Receive Date: 20150413
  Receipt Date: 20150413
  Transmission Date: 20150821
  Serious: Yes (Other)
  Sender: FDA-Public Use
  Company Number: None

PATIENT
  Age: 45 Year
  Sex: Male
  Weight: 118 kg

DRUGS (3)
  1. NAPROXEN. [Suspect]
     Active Substance: NAPROXEN
     Indication: ANALGESIC THERAPY
     Dosage: ONE
     Route: 048
     Dates: start: 20150409, end: 20150411
  2. CODEINE PHOSPHATE [Concomitant]
     Active Substance: CODEINE PHOSPHATE
  3. NAPROXEN. [Concomitant]
     Active Substance: NAPROXEN

REACTIONS (4)
  - Anxiety [None]
  - Mood altered [None]
  - Irritability [None]
  - Aggression [None]

NARRATIVE: CASE EVENT DATE: 20150411
